FAERS Safety Report 9357403 (Version 1)
Quarter: 2013Q2

REPORT INFORMATION
  Report Type: Spontaneous
  Country: US (occurrence: None)
  Receive Date: 20130617
  Receipt Date: 20130617
  Transmission Date: 20140414
  Serious: Yes (Disabling, Other)
  Sender: FDA-Public Use
  Company Number: 1306-762

PATIENT
  Age: 82 Year
  Sex: Female

DRUGS (2)
  1. EYLEA [Suspect]
     Indication: AGE-RELATED MACULAR DEGENERATION
     Dosage: 2 MG, EVERY 4-8 WEEKS, INTRAVITREAL
     Dates: start: 201203, end: 20130514
  2. COUMADIN (WARFARIN SODIUM) [Concomitant]

REACTIONS (4)
  - Eye inflammation [None]
  - Viral infection [None]
  - Eye pain [None]
  - Visual acuity reduced [None]
